FAERS Safety Report 20361550 (Version 2)
Quarter: 2022Q1

REPORT INFORMATION
  Report Type: Spontaneous
  Country: US (occurrence: US)
  Receive Date: 20220121
  Receipt Date: 20220128
  Transmission Date: 20220423
  Serious: Yes (Other)
  Sender: FDA-Public Use
  Company Number: US-TRIS PHARMA, INC.-22US010035

PATIENT

DRUGS (4)
  1. CODEINE PHOSPHATE\PROMETHAZINE HYDROCHLORIDE [Suspect]
     Active Substance: CODEINE PHOSPHATE\PROMETHAZINE HYDROCHLORIDE
     Indication: Product used for unknown indication
     Dosage: WHOLE BOTTLE, SINGLE
     Route: 048
     Dates: start: 20220113, end: 20220113
  2. CODEINE PHOSPHATE\PROMETHAZINE HYDROCHLORIDE [Suspect]
     Active Substance: CODEINE PHOSPHATE\PROMETHAZINE HYDROCHLORIDE
     Dosage: UNK
     Route: 048
  3. UNSPECIFIED INGREDIENT [Concomitant]
     Active Substance: UNSPECIFIED INGREDIENT
     Indication: Product used for unknown indication
  4. UNSPECIFIED INGREDIENT [Concomitant]
     Active Substance: UNSPECIFIED INGREDIENT
     Indication: Product used for unknown indication

REACTIONS (8)
  - Loss of consciousness [Unknown]
  - Intentional overdose [Unknown]
  - Seizure [Unknown]
  - Dysarthria [Unknown]
  - Prescription drug used without a prescription [Unknown]
  - Disorientation [Unknown]
  - Fatigue [Unknown]
  - Drug abuse [Unknown]

NARRATIVE: CASE EVENT DATE: 20220113
